FAERS Safety Report 6098048-7 (Version None)
Quarter: 2009Q1

REPORT INFORMATION
  Report Type: 
  Country: None (occurrence: None)
  Receive Date: 20090227
  Receipt Date: 20090223
  Transmission Date: 20090719
  Serious: Yes (Other)
  Sender: FDA-Public Use
  Company Number: PHEH2009US02042

PATIENT
  Sex: Female
  Weight: 75.737 kg

DRUGS (10)
  1. FEMARA [Suspect]
     Dosage: 2.5 UNK, QD
     Route: 048
     Dates: start: 20081219
  2. ZOMETA [Suspect]
     Dosage: 4 UNK, EVERY 6 MONTHS
     Route: 042
     Dates: start: 20090101
  3. CALCIUM [Concomitant]
  4. FLUTICASONE PROPIONATE [Concomitant]
  5. COLACE [Concomitant]
  6. ESTER-C [Concomitant]
  7. MULTI-VITAMINS [Concomitant]
  8. OMEPRAZOLE [Concomitant]
  9. TRAVATAN [Concomitant]
  10. VICODIN [Concomitant]

REACTIONS (1)
  - BREAST NECROSIS [None]
